FAERS Safety Report 25607162 (Version 1)
Quarter: 2025Q3

REPORT INFORMATION
  Report Type: Spontaneous
  Country: CN (occurrence: CN)
  Receive Date: 20250725
  Receipt Date: 20250725
  Transmission Date: 20251020
  Serious: Yes (Hospitalization)
  Sender: MERCK SHARP & DOHME LLC
  Company Number: CN-009507513-2312338

PATIENT
  Age: 40 Year
  Sex: Male
  Weight: 76 kg

DRUGS (1)
  1. DELSTRIGO [Suspect]
     Active Substance: DORAVIRINE\LAMIVUDINE\TENOFOVIR DISOPROXIL FUMARATE
     Indication: Acquired immunodeficiency syndrome
     Route: 048
     Dates: start: 20250520, end: 20250718

REACTIONS (3)
  - Drug-induced liver injury [Recovering/Resolving]
  - Blood glucose increased [Unknown]
  - Protein urine present [Unknown]

NARRATIVE: CASE EVENT DATE: 20250715
